FAERS Safety Report 10216305 (Version 2)
Quarter: 2014Q2

REPORT INFORMATION
  Report Type: Spontaneous
  Country: IT (occurrence: IT)
  Receive Date: 20140604
  Receipt Date: 20140604
  Transmission Date: 20141212
  Serious: Yes (Other)
  Sender: FDA-Public Use
  Company Number: IT-NOVOPROD-411321

PATIENT
  Age: 75 Year
  Sex: Female

DRUGS (6)
  1. NOVORAPID FLEXPEN [Suspect]
     Indication: DIABETES MELLITUS
     Dosage: 3 U, QD
     Route: 058
     Dates: start: 20130101
  2. LANTUS [Suspect]
     Indication: DIABETES MELLITUS
     Dosage: 1 U, QD
     Route: 058
     Dates: start: 20130101
  3. PROPAFENONE [Concomitant]
     Dosage: 2 U
     Route: 048
  4. PALEXIA [Concomitant]
     Dosage: UNK
     Route: 048
  5. CRESTOR [Concomitant]
     Dosage: UNK
     Route: 048
  6. EUTIROX [Concomitant]
     Dosage: UNK
     Route: 048

REACTIONS (3)
  - Head injury [Recovered/Resolved]
  - Syncope [Recovered/Resolved]
  - Hypoglycaemia [Recovered/Resolved]
